FAERS Safety Report 17296271 (Version 1)
Quarter: 2020Q1

REPORT INFORMATION
  Report Type: Spontaneous
  Country: US (occurrence: US)
  Receive Date: 20200122
  Receipt Date: 20200122
  Transmission Date: 20200409
  Serious: No
  Sender: FDA-Public Use
  Company Number: US-009507513-2001USA001859

PATIENT
  Sex: Female

DRUGS (17)
  1. PRINIVIL [Suspect]
     Active Substance: LISINOPRIL
     Indication: BLOOD PRESSURE ABNORMAL
     Dosage: 20MG / UNCLEAR
  2. NITROFURANTOIN. [Concomitant]
     Active Substance: NITROFURANTOIN
     Dosage: UNK
     Dates: start: 20190928, end: 20191007
  3. PRINIVIL [Suspect]
     Active Substance: LISINOPRIL
     Dosage: 2AM 1 PM/ 1AM 2PM
     Dates: start: 20190222, end: 20190321
  4. HYDRALAZINE [Concomitant]
     Active Substance: HYDRALAZINE HYDROCHLORIDE
     Dosage: 100 MG 3 X /D
     Dates: start: 20191027
  5. PROBIOTICS (UNSPECIFIED) [Concomitant]
     Active Substance: PROBIOTICS NOS
     Dosage: UNK
     Dates: start: 20190722, end: 20190818
  6. AMLODIPINE [Concomitant]
     Active Substance: AMLODIPINE BESYLATE
     Dosage: 1 X / DAY
     Dates: start: 20190529, end: 20190626
  7. AMLODIPINE [Concomitant]
     Active Substance: AMLODIPINE BESYLATE
     Dosage: 10 MG 1 X / D
     Dates: start: 20191027
  8. NITROFURANTOIN. [Concomitant]
     Active Substance: NITROFURANTOIN
     Dosage: A PLUS NITROFURANTOIN ^TIL7/7
     Dates: start: 20190627, end: 20190707
  9. PRINIVIL [Suspect]
     Active Substance: LISINOPRIL
     Dosage: 1 1/2 PILLS A DAY
     Dates: start: 201902, end: 2019
  10. PRINIVIL [Suspect]
     Active Substance: LISINOPRIL
     Dosage: 20 MG, 4 AVERAGE OF TIMES A DAY
     Route: 048
     Dates: start: 20191129, end: 2019
  11. CEPHALEXIN. [Concomitant]
     Active Substance: CEPHALEXIN
     Dosage: UNK
     Dates: start: 20190715, end: 20190801
  12. PRINIVIL [Suspect]
     Active Substance: LISINOPRIL
     Dosage: WHOLE PILL 2X/DAY
     Dates: start: 20190322, end: 20190423
  13. PRINIVIL [Suspect]
     Active Substance: LISINOPRIL
     Dosage: 40 MG 1 X / D
     Dates: start: 20191027, end: 2019
  14. PRINIVIL [Suspect]
     Active Substance: LISINOPRIL
     Dosage: 1 LISINOPRIL EVERY 6 HOURS
     Route: 048
     Dates: start: 20191214
  15. NITROFURANTOIN. [Concomitant]
     Active Substance: NITROFURANTOIN
     Dosage: UNK
     Dates: start: 20190928
  16. PRINIVIL [Suspect]
     Active Substance: LISINOPRIL
     Dosage: 1/2 PILL 2 X A DAY
     Dates: start: 201901, end: 2019
  17. CARVEDILOL. [Concomitant]
     Active Substance: CARVEDILOL
     Dosage: 6.25 2 X/D
     Dates: start: 20191027

REACTIONS (7)
  - Abdominal pain [Unknown]
  - Nausea [Unknown]
  - Drug ineffective [Unknown]
  - Breast pain [Unknown]
  - Infection [Unknown]
  - Diarrhoea [Unknown]
  - Inappropriate schedule of product administration [Unknown]

NARRATIVE: CASE EVENT DATE: 2019
